FAERS Safety Report 5748608-5 (Version None)
Quarter: 2008Q2

REPORT INFORMATION
  Report Type: 
  Country: None (occurrence: None)
  Receive Date: 20080521
  Receipt Date: 20080506
  Transmission Date: 20081010
  Serious: Yes (Other)
  Sender: FDA-Public Use
  Company Number: 08-000727

PATIENT
  Age: 22 Year
  Sex: Female
  Weight: 52.2 kg

DRUGS (3)
  1. LOESTRIN 24 FE [Suspect]
     Indication: ENDOMETRIOSIS
     Dosage: 20/1000 UG, QD, ORAL
     Route: 048
     Dates: start: 20080428
  2. ALBUTEROL [Concomitant]
  3. VALERIAN ROOT (VALERIANA OFFICINALIS ROOT) [Concomitant]

REACTIONS (1)
  - PETIT MAL EPILEPSY [None]
